FAERS Safety Report 16698465 (Version 2)
Quarter: 2019Q3

REPORT INFORMATION
  Report Type: Spontaneous
  Country: US (occurrence: US)
  Receive Date: 20190813
  Receipt Date: 20190827
  Transmission Date: 20191004
  Serious: Yes (Other)
  Sender: FDA-Public Use
  Company Number: US-TEVA-2019-US-1090522

PATIENT
  Age: 62 Year
  Sex: Male

DRUGS (9)
  1. CYCLOPHOSPHAMIDE. [Suspect]
     Active Substance: CYCLOPHOSPHAMIDE
     Indication: T-CELL PROLYMPHOCYTIC LEUKAEMIA
     Dosage: AS PEP-C THERAPY
     Route: 065
  2. ETOPOSIDE. [Suspect]
     Active Substance: ETOPOSIDE
     Indication: T-CELL PROLYMPHOCYTIC LEUKAEMIA
     Dosage: AS PEP-C THERAPY AND PREVIOUSLY AS BEAM CONDITIONING THERAPY
     Route: 065
  3. PROCARBAZINE [Suspect]
     Active Substance: PROCARBAZINE
     Indication: T-CELL PROLYMPHOCYTIC LEUKAEMIA
     Dosage: AS PEP-C THERAPY
     Route: 065
  4. CYTARABINE. [Concomitant]
     Active Substance: CYTARABINE
     Indication: T-CELL PROLYMPHOCYTIC LEUKAEMIA
     Dosage: AS BEAM CONDITIONING THERAPY
     Route: 065
  5. ALEMTUZUMAB [Suspect]
     Active Substance: ALEMTUZUMAB
     Indication: T-CELL PROLYMPHOCYTIC LEUKAEMIA
     Dosage: TREATMENT DURATION AFTER TRANSPLANT: 1 MONTH BEFORE TOFACITINIB THERAPY;
     Route: 065
  6. CARMUSTINE. [Concomitant]
     Active Substance: CARMUSTINE
     Indication: T-CELL PROLYMPHOCYTIC LEUKAEMIA
     Dosage: AS BEAM CONDITIONING THERAPY
     Route: 065
  7. MELPHALAN. [Concomitant]
     Active Substance: MELPHALAN
     Indication: T-CELL PROLYMPHOCYTIC LEUKAEMIA
     Dosage: AS BEAM CONDITIONING THERAPY
     Route: 065
  8. TACROLIMUS. [Concomitant]
     Active Substance: TACROLIMUS
     Indication: PROPHYLAXIS AGAINST GRAFT VERSUS HOST DISEASE
     Route: 065
  9. PREDNISONE. [Suspect]
     Active Substance: PREDNISONE
     Indication: T-CELL PROLYMPHOCYTIC LEUKAEMIA
     Dosage: AS PEP-C THERAPY
     Route: 065

REACTIONS (4)
  - Neutropenia [Recovering/Resolving]
  - Renal failure [Unknown]
  - Thrombocytopenia [Unknown]
  - Anaemia [Unknown]
